FAERS Safety Report 22004041 (Version 1)
Quarter: 2023Q1

REPORT INFORMATION
  Report Type: Other
  Country: US (occurrence: None)
  Receive Date: 20230217
  Receipt Date: 20230217
  Transmission Date: 20230418
  Serious: Yes (Other)
  Sender: FDA-Public Use
  Company Number: US-ROCHE-3284117

PATIENT
  Age: 37 Year
  Sex: Female
  Weight: 136.20 kg

DRUGS (5)
  1. OCREVUS [Suspect]
     Active Substance: OCRELIZUMAB
     Indication: Multiple sclerosis
     Route: 042
     Dates: start: 2021
  2. INHALER (UNK INGREDIENTS) [Concomitant]
  3. OXYGEN [Concomitant]
     Active Substance: OXYGEN
  4. GABAPENTIN [Concomitant]
     Active Substance: GABAPENTIN
  5. LOSARTAN [Concomitant]
     Active Substance: LOSARTAN

REACTIONS (7)
  - Pneumonia [Unknown]
  - Pneumothorax [Unknown]
  - Blood glucose increased [Unknown]
  - Hyperhidrosis [Not Recovered/Not Resolved]
  - Formication [Not Recovered/Not Resolved]
  - Muscle spasms [Not Recovered/Not Resolved]
  - Therapeutic response shortened [Not Recovered/Not Resolved]
